FAERS Safety Report 4372580-6 (Version None)
Quarter: 2004Q2

REPORT INFORMATION
  Report Type: 
  Country: None (occurrence: None)
  Receive Date: 20040526
  Receipt Date: 20040511
  Transmission Date: 20050107
  Serious: Yes (Other)
  Sender: FDA-Public Use
  Company Number: EMADSS2002006605

PATIENT
  Age: 47 Year
  Sex: Female
  Weight: 79 kg

DRUGS (9)
  1. REMICADE [Suspect]
     Indication: ASTHMA
     Dosage: 5 MG/KG, 1 IN 1 AS NECESSARY, INTRAVENOUS DRIP
     Route: 041
     Dates: start: 20020723, end: 20020723
  2. REMICADE [Suspect]
     Indication: ASTHMA
     Dosage: 5 MG/KG, 1 IN 1 AS NECESSARY, INTRAVENOUS DRIP
     Route: 041
     Dates: start: 20020806, end: 20020806
  3. REMICADE [Suspect]
     Indication: ASTHMA
     Dosage: 5 MG/KG, 1 IN 1 AS NECESSARY, INTRAVENOUS DRIP
     Route: 041
     Dates: start: 20020903, end: 20020903
  4. REMICADE [Suspect]
     Indication: ASTHMA
     Dosage: 5 MG/KG, 1 IN 1 AS NECESSARY, INTRAVENOUS DRIP
     Route: 041
     Dates: start: 20021105, end: 20021105
  5. PREDNISONE TAB [Concomitant]
  6. FLUTICASONE PROPIONATE [Concomitant]
  7. FORMOTEROL (FORMOTEROL) [Concomitant]
  8. VERAPAMIL [Concomitant]
  9. DIGOXIN [Concomitant]

REACTIONS (1)
  - BASAL CELL CARCINOMA [None]
